FAERS Safety Report 5671114-3 (Version None)
Quarter: 2008Q1

REPORT INFORMATION
  Report Type: 
  Country: None (occurrence: None)
  Receive Date: 20080318
  Receipt Date: 20080306
  Transmission Date: 20080703
  Serious: Yes (Disabling)
  Sender: FDA-Public Use
  Company Number: CH-SANOFI-SYNTHELABO-A01200803008

PATIENT
  Sex: Male
  Weight: 72 kg

DRUGS (3)
  1. AVODART [Concomitant]
     Indication: BENIGN PROSTATIC HYPERPLASIA
     Dosage: 0.5 MG
     Route: 048
     Dates: start: 20060101
  2. XATRAL UNO [Suspect]
     Indication: BENIGN PROSTATIC HYPERPLASIA
     Route: 048
     Dates: start: 20050101, end: 20080301
  3. ZESTRIL [Concomitant]
     Indication: HYPERTENSION
     Dosage: 30 MG
     Route: 048
     Dates: start: 19970101, end: 20080301

REACTIONS (1)
  - PERIPHERAL SENSORY NEUROPATHY [None]
